FAERS Safety Report 23709591 (Version 2)
Quarter: 2024Q2

REPORT INFORMATION
  Report Type: Report from Study
  Country: BR (occurrence: BR)
  Receive Date: 20240404
  Receipt Date: 20240515
  Transmission Date: 20240716
  Serious: Yes (Hospitalization)
  Sender: FDA-Public Use
  Company Number: BR-JNJFOC-20240367249

PATIENT
  Age: 65 Year
  Sex: Male
  Weight: 79 kg

DRUGS (3)
  1. TECLISTAMAB [Suspect]
     Active Substance: TECLISTAMAB
     Indication: Plasma cell myeloma refractory
     Route: 058
     Dates: start: 20230114
  2. TECLISTAMAB [Suspect]
     Active Substance: TECLISTAMAB
     Dosage: 0.3 ML IN SAME SYRINGE
     Route: 058
     Dates: start: 20240320
  3. TALQUETAMAB [Suspect]
     Active Substance: TALQUETAMAB
     Indication: Plasma cell myeloma
     Route: 065
     Dates: start: 20240320

REACTIONS (8)
  - C-reactive protein increased [Unknown]
  - Serum ferritin increased [Unknown]
  - Product selection error [Unknown]
  - Product preparation error [Unknown]
  - Wrong product administered [Unknown]
  - Dry skin [Recovered/Resolved]
  - Paronychia [Recovering/Resolving]
  - Dysgeusia [Not Recovered/Not Resolved]

NARRATIVE: CASE EVENT DATE: 20240320
